FAERS Safety Report 20675010 (Version 1)
Quarter: 2022Q2

REPORT INFORMATION
  Report Type: Report from Study
  Country: US (occurrence: US)
  Receive Date: 20220405
  Receipt Date: 20220405
  Transmission Date: 20220721
  Serious: Yes (Hospitalization, Other)
  Sender: FDA-Public Use
  Company Number: US-TAKEDA-2022TUS021528

PATIENT
  Age: 65 Year
  Sex: Male

DRUGS (1)
  1. HUMAN IMMUNOGLOBULIN G [Suspect]
     Active Substance: HUMAN IMMUNOGLOBULIN G
     Indication: Immunodeficiency common variable
     Dosage: 10 GRAM
     Route: 058

REACTIONS (5)
  - Myocardial infarction [Unknown]
  - Sinusitis [Unknown]
  - Tooth infection [Unknown]
  - Delusion [Unknown]
  - Anaemia [Unknown]

NARRATIVE: CASE EVENT DATE: 20201001
